FAERS Safety Report 5495032-9 (Version None)
Quarter: 2007Q4

REPORT INFORMATION
  Report Type: 
  Country: None (occurrence: None)
  Receive Date: 20071024
  Receipt Date: 20071012
  Transmission Date: 20080405
  Serious: Yes (Hospitalization, Other)
  Sender: FDA-Public Use
  Company Number: GB-SHR-GB-2007-036520

PATIENT
  Age: 66 Year
  Sex: Male
  Weight: 69.841 kg

DRUGS (5)
  1. CAMPATH [Suspect]
     Dosage: 3/3/10/ THEN 30MG
     Route: 058
     Dates: start: 20070730, end: 20070824
  2. DAPSONE [Concomitant]
     Dosage: 100 MG, 2X/DAY
     Route: 048
     Dates: start: 20070723
  3. OMEPRAZOLE [Concomitant]
     Indication: DYSPEPSIA
     Dosage: 20 MG, 1X/DAY
     Route: 048
     Dates: start: 20070723
  4. ACYCLOVIR [Concomitant]
     Indication: INFECTION PROPHYLAXIS
     Dosage: 400 MG, 1X/DAY
     Route: 048
     Dates: start: 20070723
  5. FLUCONAZOLE [Concomitant]
     Indication: INFECTION PROPHYLAXIS
     Dosage: 100 MG, 1X/DAY
     Route: 048
     Dates: start: 20070723

REACTIONS (7)
  - COUGH [None]
  - CYTOMEGALOVIRUS TEST POSITIVE [None]
  - DYSPNOEA [None]
  - HYPOXIA [None]
  - NEUTROPENIA [None]
  - OEDEMA PERIPHERAL [None]
  - PLEURAL EFFUSION [None]
